FAERS Safety Report 10432709 (Version 2)
Quarter: 2014Q3

REPORT INFORMATION
  Report Type: Spontaneous
  Country: US (occurrence: US)
  Receive Date: 20140905
  Receipt Date: 20140929
  Transmission Date: 20150326
  Serious: Yes (Other)
  Sender: FDA-Public Use
  Company Number: CHPA2014US011574

PATIENT
  Age: 78 Year
  Sex: Female

DRUGS (5)
  1. EXCEDRIN TENSION HEADACHE [Suspect]
     Active Substance: ACETAMINOPHEN\CAFFEINE
     Indication: HEADACHE
     Dosage: 2 DF, UNK
     Route: 048
     Dates: end: 201401
  2. EXCEDRIN TENSION HEADACHE [Suspect]
     Active Substance: ACETAMINOPHEN\CAFFEINE
     Indication: BACK PAIN
  3. EXCEDRIN MIGRAINE [Suspect]
     Active Substance: ACETAMINOPHEN\ASPIRIN\CAFFEINE
     Indication: HEADACHE
     Dosage: 2 DF, UNK
  4. EXCEDRIN TENSION HEADACHE [Suspect]
     Active Substance: ACETAMINOPHEN\CAFFEINE
     Indication: OFF LABEL USE
  5. EXCEDRIN MIGRAINE [Suspect]
     Active Substance: ACETAMINOPHEN\ASPIRIN\CAFFEINE
     Indication: OFF LABEL USE

REACTIONS (3)
  - Back disorder [Unknown]
  - Drug ineffective for unapproved indication [Unknown]
  - Therapeutic response changed [Unknown]
